FAERS Safety Report 6693054-3 (Version None)
Quarter: 2010Q2

REPORT INFORMATION
  Report Type: 
  Country: None (occurrence: None)
  Receive Date: 20100422
  Receipt Date: 20100412
  Transmission Date: 20101027
  Serious: Yes (Hospitalization)
  Sender: FDA-Public Use
  Company Number: US-AMGEN-QUU405983

PATIENT
  Sex: Male

DRUGS (2)
  1. ENBREL [Suspect]
     Indication: RHEUMATOID ARTHRITIS
     Route: 058
     Dates: start: 19991201
  2. METHOTREXATE [Concomitant]

REACTIONS (9)
  - BONE DENSITY DECREASED [None]
  - FUNGAL INFECTION [None]
  - HAND DEFORMITY [None]
  - INJECTION SITE PRURITUS [None]
  - KNEE ARTHROPLASTY [None]
  - LOCALISED INFECTION [None]
  - RHEUMATOID ARTHRITIS [None]
  - TOOTH FRACTURE [None]
  - TOOTH INFECTION [None]
